FAERS Safety Report 5137834-4 (Version None)
Quarter: 2006Q4

REPORT INFORMATION
  Report Type: 
  Country: None (occurrence: None)
  Receive Date: 20061030
  Receipt Date: 20060119
  Transmission Date: 20070319
  Serious: No
  Sender: FDA-Public Use
  Company Number: US-GLAXOSMITHKLINE-A0590320A

PATIENT
  Age: 76 Year
  Sex: Female

DRUGS (7)
  1. ADVAIR HFA [Suspect]
     Indication: ASTHMA
     Dosage: 1PUFF PER DAY
     Route: 055
     Dates: start: 20020801, end: 20021201
  2. PROTOPIC [Concomitant]
  3. AMITRIPTYLINE HCL [Concomitant]
  4. TRIAMTERENE AND HYDROCHLOROTHIAZIDE [Concomitant]
  5. CLONAZEPAM [Concomitant]
  6. LEXAPRO [Concomitant]
  7. AMBIEN [Concomitant]

REACTIONS (3)
  - CHEILITIS [None]
  - DYSPHONIA [None]
  - ORAL MUCOSAL ERUPTION [None]
